FAERS Safety Report 19121188 (Version 1)
Quarter: 2021Q2

REPORT INFORMATION
  Report Type: Spontaneous
  Country: US (occurrence: US)
  Receive Date: 20210412
  Receipt Date: 20210412
  Transmission Date: 20210717
  Serious: No
  Sender: FDA-Public Use
  Company Number: None

PATIENT
  Age: 69 Year
  Sex: Female
  Weight: 61.24 kg

DRUGS (10)
  1. LISINOPRIL. [Concomitant]
     Active Substance: LISINOPRIL
  2. VITAMIN C + ROSE HIPS [Concomitant]
  3. SALINE WASH [Suspect]
     Active Substance: SODIUM BICARBONATE\SODIUM CHLORIDE
     Indication: HYPERSENSITIVITY
     Dosage: ?OTHER FREQUENCY: 1 PKT EVERY 6?8 H;?OTHER ROUTE:MIXED W/DISTILLED WATER ?PUT IN NASAL?
     Dates: start: 20210402, end: 20210402
  4. SENIOR MULTI VITAMIN [Concomitant]
  5. GLUCOSAMINE CHONDROITIN [Concomitant]
     Active Substance: CHONDROITIN SULFATE (BOVINE)\GLUCOSAMINE HYDROCHLORIDE
  6. LATANOP [Concomitant]
  7. BABY ASPIRIN [Concomitant]
     Active Substance: ASPIRIN
  8. CALCIUM + VITAMIN D [Concomitant]
     Active Substance: CALCIUM\VITAMIN D
  9. CETRIZINE HYDROCHORIDE [Concomitant]
  10. PROBIOTIC [Concomitant]
     Active Substance: PROBIOTICS NOS

REACTIONS (5)
  - Parosmia [None]
  - Nasal discomfort [None]
  - Sinus pain [None]
  - Product quality issue [None]
  - Lacrimation increased [None]

NARRATIVE: CASE EVENT DATE: 20210402
